FAERS Safety Report 18744441 (Version 1)
Quarter: 2021Q1

REPORT INFORMATION
  Report Type: Spontaneous
  Country: DE (occurrence: DE)
  Receive Date: 20210115
  Receipt Date: 20210115
  Transmission Date: 20210419
  Serious: Yes (Congenital Anomaly)
  Sender: FDA-Public Use
  Company Number: DE-AUROBINDO-AUR-APL-2021-001510

PATIENT
  Sex: Male
  Weight: 2.31 kg

DRUGS (5)
  1. INFLUSPLIT TETRA [Concomitant]
     Active Substance: INFLUENZA VIRUS VACCINE
     Indication: IMMUNISATION
     Dosage: UNK
     Route: 064
     Dates: start: 20200228, end: 20200228
  2. L?THYROXIN [Concomitant]
     Active Substance: LEVOTHYROXINE SODIUM
     Indication: HYPOTHYROIDISM
     Dosage: 50 MICROGRAM, DAILY (BIS 25)
     Route: 064
     Dates: start: 20191107, end: 20200704
  3. GELOREVOICE [Concomitant]
     Indication: COUGH
     Dosage: UNK
     Route: 064
     Dates: start: 20200104, end: 20200114
  4. ARIPIPRAZOLE. [Suspect]
     Active Substance: ARIPIPRAZOLE
     Indication: SCHIZOPHRENIA
     Dosage: 10 MILLIGRAM, ONCE A DAY
     Route: 064
     Dates: start: 20191107, end: 20200704
  5. RISPERIDONE. [Suspect]
     Active Substance: RISPERIDONE
     Indication: SCHIZOPHRENIA
     Dosage: 0.5 MILLIGRAM, ONCE A DAY
     Route: 064
     Dates: start: 20191107, end: 20200402

REACTIONS (2)
  - Atrial septal defect [Unknown]
  - Foetal exposure during pregnancy [Unknown]
